FAERS Safety Report 6129512-X (Version None)
Quarter: 2009Q1

REPORT INFORMATION
  Report Type: 
  Country: None (occurrence: None)
  Receive Date: 20090324
  Receipt Date: 20090313
  Transmission Date: 20090719
  Serious: Yes (Other)
  Sender: FDA-Public Use
  Company Number: US-AMGEN-QUU334451

PATIENT
  Sex: Female

DRUGS (13)
  1. ENBREL [Suspect]
     Indication: RHEUMATOID ARTHRITIS
     Route: 058
  2. AZULFIDINE EN-TABS [Suspect]
  3. METHOTREXATE [Concomitant]
  4. ANSAID [Concomitant]
  5. FOLIC ACID [Concomitant]
  6. ACIPHEX [Concomitant]
  7. SYNTHROID [Concomitant]
  8. ACTONEL [Concomitant]
  9. CALCIUM [Concomitant]
  10. MULTI-VITAMINS [Concomitant]
  11. COENZYME Q10 [Concomitant]
  12. AMBIEN [Concomitant]
  13. MELATONIN [Concomitant]

REACTIONS (10)
  - DRUG ERUPTION [None]
  - INJECTION SITE ERYTHEMA [None]
  - INJECTION SITE PAIN [None]
  - INJECTION SITE PRURITUS [None]
  - INJECTION SITE SWELLING [None]
  - NEURILEMMOMA BENIGN [None]
  - ORAL FIBROMA [None]
  - RASH GENERALISED [None]
  - RASH PRURITIC [None]
  - RHEUMATOID ARTHRITIS [None]
